FAERS Safety Report 12919505 (Version 2)
Quarter: 2016Q4

REPORT INFORMATION
  Report Type: Spontaneous
  Country: AR (occurrence: AR)
  Receive Date: 20161107
  Receipt Date: 20161213
  Transmission Date: 20170207
  Serious: Yes (Hospitalization, Disabling, Other)
  Sender: FDA-Public Use
  Company Number: AR-GLAXOSMITHKLINE-AR2016GSK160142

PATIENT
  Age: 34 Year
  Sex: Female

DRUGS (6)
  1. POLIRREUMIN [Concomitant]
     Route: 065
  2. CORTICOSTEROIDS [Concomitant]
     Active Substance: CORTICOSTEROID NOS
  3. ATARAXONE [Concomitant]
  4. BENLYSTA [Suspect]
     Active Substance: BELIMUMAB
     Indication: SYSTEMIC LUPUS ERYTHEMATOSUS
     Dosage: UNK
     Dates: start: 20160713, end: 20160901
  5. ARTRAIT [Concomitant]
     Active Substance: METHOTREXATE SODIUM
     Dosage: UNK
  6. FOLIC ACID. [Concomitant]
     Active Substance: FOLIC ACID

REACTIONS (4)
  - Pericardial effusion [Unknown]
  - Leukopenia [Recovered/Resolved]
  - Product availability issue [Unknown]
  - Pleural effusion [Unknown]

NARRATIVE: CASE EVENT DATE: 20161105
